FAERS Safety Report 15155873 (Version 1)
Quarter: 2018Q3

REPORT INFORMATION
  Report Type: Spontaneous
  Country: US (occurrence: US)
  Receive Date: 20180717
  Receipt Date: 20180717
  Transmission Date: 20181010
  Serious: Yes (Other)
  Sender: FDA-Public Use
  Company Number: US-US WORLDMEDS, LLC-STA_00020346

PATIENT
  Age: 64 Year
  Sex: Male
  Weight: 59.4 kg

DRUGS (1)
  1. APOKYN [Suspect]
     Active Substance: APOMORPHINE HYDROCHLORIDE
     Indication: PARKINSON^S DISEASE
     Dosage: 2 ? 3 MG X 1/ DAY
     Route: 058
     Dates: start: 20081219

REACTIONS (8)
  - Dyskinesia [Unknown]
  - Hypotension [Unknown]
  - Yawning [Unknown]
  - Nausea [Unknown]
  - Chest pain [Not Recovered/Not Resolved]
  - Burning sensation [Not Recovered/Not Resolved]
  - Pallor [Unknown]
  - Flushing [Unknown]

NARRATIVE: CASE EVENT DATE: 200812
